FAERS Safety Report 8476741-6 (Version None)
Quarter: 2012Q2

REPORT INFORMATION
  Report Type: 
  Country: None (occurrence: None)
  Receive Date: 20120628
  Receipt Date: 20120620
  Transmission Date: 20120825
  Serious: Yes (Hospitalization, Other)
  Sender: FDA-Public Use
  Company Number: US-RB-040814-12

PATIENT
  Age: 51 Year
  Sex: Female

DRUGS (7)
  1. SUBOXONE [Suspect]
     Route: 060
     Dates: start: 20110501
  2. DIAZEPAM [Concomitant]
     Indication: DEPRESSION
     Dosage: 2MG FOUR TIMES DAILY AS REQUIRED
  3. SUBOXONE [Suspect]
     Indication: DRUG DEPENDENCE
     Dosage: TAPERED TO 12 MG DAILY
     Route: 060
  4. EFFEXOR [Concomitant]
     Indication: DEPRESSION
  5. SUBOXONE [Suspect]
     Indication: DRUG DEPENDENCE
     Route: 060
     Dates: start: 20070301, end: 20110501
  6. LISINOPRIL [Concomitant]
     Indication: HYPERTENSION
     Dosage: DOSING DETAILS UNKNOWN
  7. IBUPROFEN [Concomitant]
     Indication: PAIN

REACTIONS (8)
  - HYPERHIDROSIS [None]
  - PARAESTHESIA [None]
  - FATIGUE [None]
  - WRONG TECHNIQUE IN DRUG USAGE PROCESS [None]
  - GAIT DISTURBANCE [None]
  - IRON DEFICIENCY ANAEMIA [None]
  - SMALL INTESTINAL HAEMORRHAGE [None]
  - DENTAL CARIES [None]
